FAERS Safety Report 22625452 (Version 1)
Quarter: 2023Q2

REPORT INFORMATION
  Report Type: Spontaneous
  Country: BG (occurrence: BG)
  Receive Date: 20230621
  Receipt Date: 20230621
  Transmission Date: 20230721
  Serious: Yes (Hospitalization, Other)
  Sender: FDA-Public Use
  Company Number: BG-SUN PHARMACEUTICAL INDUSTRIES LTD-2023R1-395498

PATIENT
  Age: 43 Year
  Sex: Male

DRUGS (1)
  1. ASPIRIN [Suspect]
     Active Substance: ASPIRIN
     Indication: COVID-19
     Dosage: 300 MILLIGRAM, DAILY
     Route: 065

REACTIONS (3)
  - Acute psychosis [Recovered/Resolved]
  - Agitation [Recovered/Resolved]
  - Cotard^s syndrome [Recovered/Resolved]
